FAERS Safety Report 5187005-0 (Version None)
Quarter: 2006Q4

REPORT INFORMATION
  Report Type: 
  Country: None (occurrence: None)
  Receive Date: 20061220
  Receipt Date: 20061026
  Transmission Date: 20070319
  Serious: No
  Sender: FDA-Public Use
  Company Number: US-AMGEN-KDL198253

PATIENT
  Sex: Male

DRUGS (2)
  1. ENBREL [Suspect]
     Indication: PSORIATIC ARTHROPATHY
     Route: 058
     Dates: start: 20041001
  2. ENBREL [Suspect]
     Indication: PSORIASIS

REACTIONS (8)
  - CATARACT [None]
  - CONDITION AGGRAVATED [None]
  - GASTROOESOPHAGEAL REFLUX DISEASE [None]
  - HYPERTENSION [None]
  - NAIL DISORDER [None]
  - NASOPHARYNGEAL DISORDER [None]
  - PSORIASIS [None]
  - PSORIATIC ARTHROPATHY [None]
